FAERS Safety Report 20924811 (Version 1)
Quarter: 2022Q2

REPORT INFORMATION
  Report Type: Spontaneous
  Country: IN (occurrence: IN)
  Receive Date: 20220607
  Receipt Date: 20220607
  Transmission Date: 20220720
  Serious: Yes (Other)
  Sender: FDA-Public Use
  Company Number: IN-MLMSERVICE-20220525-3578078-1

PATIENT
  Age: 21 Year
  Sex: Male

DRUGS (10)
  1. SERTRALINE [Suspect]
     Active Substance: SERTRALINE HYDROCHLORIDE
     Indication: Mental disorder
     Dosage: 100 MILLIGRAM, QD
     Route: 048
  2. SERTRALINE [Suspect]
     Active Substance: SERTRALINE HYDROCHLORIDE
     Indication: Gender dysphoria
  3. BUSPIRONE [Suspect]
     Active Substance: BUSPIRONE HYDROCHLORIDE
     Indication: Mental disorder
     Dosage: 5 MILLIGRAM, QD
     Route: 048
  4. BUSPIRONE [Suspect]
     Active Substance: BUSPIRONE HYDROCHLORIDE
     Indication: Gender dysphoria
  5. PERPHENAZINE [Suspect]
     Active Substance: PERPHENAZINE
     Indication: Mental disorder
     Dosage: 2 MILLIGRAM, BID
     Route: 048
  6. PERPHENAZINE [Suspect]
     Active Substance: PERPHENAZINE
     Indication: Gender dysphoria
  7. PALIPERIDONE [Suspect]
     Active Substance: PALIPERIDONE
     Indication: Mental disorder
     Dosage: UNK
     Route: 030
  8. PALIPERIDONE [Suspect]
     Active Substance: PALIPERIDONE
     Indication: Gender dysphoria
  9. ESTRADIOL [Concomitant]
     Active Substance: ESTRADIOL
     Indication: Gender reassignment therapy
     Dosage: 2 MILLIGRAM, QD
     Route: 048
  10. SPIRONOLACTONE [Concomitant]
     Active Substance: SPIRONOLACTONE
     Indication: Gender reassignment therapy
     Dosage: 25 MILLIGRAM, BID
     Route: 048

REACTIONS (1)
  - Hyperprolactinaemia [Recovering/Resolving]
